FAERS Safety Report 23519911 (Version 1)
Quarter: 2024Q1

REPORT INFORMATION
  Report Type: Report from Study
  Country: US (occurrence: US)
  Receive Date: 20240213
  Receipt Date: 20240213
  Transmission Date: 20240409
  Serious: Yes (Hospitalization, Other)
  Sender: FDA-Public Use
  Company Number: US-ABBVIE-5637406

PATIENT
  Sex: Female

DRUGS (1)
  1. HUMIRA [Suspect]
     Active Substance: ADALIMUMAB
     Indication: Psoriatic arthropathy
     Route: 058
     Dates: start: 20220206

REACTIONS (5)
  - Cough [Recovered/Resolved]
  - Oxygen saturation decreased [Recovering/Resolving]
  - Weight increased [Recovered/Resolved]
  - Deafness unilateral [Recovered/Resolved]
  - Dyspnoea [Unknown]
